FAERS Safety Report 20068569 (Version 3)
Quarter: 2022Q2

REPORT INFORMATION
  Report Type: Spontaneous
  Country: US (occurrence: US)
  Receive Date: 20211115
  Receipt Date: 20220408
  Transmission Date: 20220720
  Serious: No
  Sender: FDA-Public Use
  Company Number: US-PFIZER INC-202101505266

PATIENT
  Age: 64 Year
  Sex: Female

DRUGS (2)
  1. IBRANCE [Suspect]
     Active Substance: PALBOCICLIB
     Indication: Breast cancer female
     Dosage: 100 MG
     Dates: start: 20201222
  2. IBRANCE [Suspect]
     Active Substance: PALBOCICLIB
     Dosage: 75 MG
     Dates: start: 20210114

REACTIONS (4)
  - Candida infection [Unknown]
  - Gingival pain [Unknown]
  - Stomatitis [Unknown]
  - Fatigue [Not Recovered/Not Resolved]
